FAERS Safety Report 6908925-X (Version None)
Quarter: 2010Q3

REPORT INFORMATION
  Report Type: 
  Country: None (occurrence: None)
  Receive Date: 20100805
  Receipt Date: 20100726
  Transmission Date: 20110219
  Serious: Yes (Other)
  Sender: FDA-Public Use
  Company Number: US-PFIZER INC-2010068641

PATIENT
  Sex: Female
  Weight: 69 kg

DRUGS (11)
  1. CHANTIX [Suspect]
     Indication: SMOKING CESSATION THERAPY
     Dosage: UNK
     Dates: start: 20100423, end: 20100517
  2. LIPITOR [Suspect]
     Dosage: 80 MG, 1X/DAY
     Dates: end: 20100517
  3. BISOPROLOL [Concomitant]
     Dosage: 5 MG, 1X/DAY
  4. FISH OIL [Concomitant]
     Dosage: 2 G, 1X/DAY
  5. PLAVIX [Concomitant]
     Dosage: 75 MG, 1X/DAY
  6. ACETYLSALICYLIC ACID [Concomitant]
     Dosage: 81 MG, 2X/DAY
  7. ZOLOFT [Concomitant]
     Dosage: 50 MG, 1X/DAY
  8. ALTACE [Concomitant]
     Dosage: 10 MG, 2X/DAY
  9. NITROGLYCERIN [Concomitant]
     Dosage: UNK
     Route: 060
  10. HYDROCHLOROTHIAZIDE [Concomitant]
     Dosage: 25 MG, DAILY
  11. ALPRAZOLAM [Concomitant]
     Dosage: 0.25MG -2  AT BEDTIME

REACTIONS (8)
  - ANXIETY [None]
  - CHEST DISCOMFORT [None]
  - CORONARY ARTERY DISEASE [None]
  - DRUG INEFFECTIVE [None]
  - DYSPNOEA [None]
  - MALAISE [None]
  - MIDDLE INSOMNIA [None]
  - NAUSEA [None]
